FAERS Safety Report 14875388 (Version 5)
Quarter: 2018Q4

REPORT INFORMATION
  Report Type: Spontaneous
  Country: DE (occurrence: DE)
  Receive Date: 20180510
  Receipt Date: 20181008
  Transmission Date: 20190204
  Serious: Yes (Other)
  Sender: FDA-Public Use
  Company Number: DE-009507513-1805DEU003315

PATIENT
  Age: 59 Year
  Sex: Female

DRUGS (4)
  1. TIOBLIS 10 MG/20 MG [Suspect]
     Active Substance: ATORVASTATIN\EZETIMIBE
     Indication: HYPERCHOLESTEROLAEMIA
     Dosage: 1 DF, QD
     Dates: start: 20171110, end: 20171120
  2. UBIDECARENONE [Concomitant]
     Active Substance: UBIDECARENONE
     Dosage: 30 MG, QD
  3. DEKRISTOL [Concomitant]
     Active Substance: CHOLECALCIFEROL
     Dosage: 20.000 IU, QW
  4. MONOPROST [Concomitant]
     Active Substance: LATANOPROST
     Indication: GLAUCOMA
     Dosage: UNK, QD

REACTIONS (12)
  - Abdominal pain lower [Recovered/Resolved]
  - Urine odour abnormal [Recovered/Resolved]
  - Decreased appetite [Recovered/Resolved]
  - Abdominal rigidity [Recovered/Resolved]
  - Decreased appetite [Recovered/Resolved]
  - Nausea [Recovered/Resolved]
  - Feeling abnormal [Unknown]
  - Abnormal faeces [Recovered/Resolved]
  - Constipation [Recovered/Resolved]
  - Abdominal discomfort [Recovered/Resolved]
  - Irritable bowel syndrome [Unknown]
  - Headache [Recovered/Resolved]

NARRATIVE: CASE EVENT DATE: 20171110
